FAERS Safety Report 23989763 (Version 1)
Quarter: 2024Q2

REPORT INFORMATION
  Report Type: Spontaneous
  Country: US (occurrence: US)
  Receive Date: 20240619
  Receipt Date: 20240619
  Transmission Date: 20240716
  Serious: No
  Sender: FDA-Public Use
  Company Number: US-LEO Pharma-371260

PATIENT
  Age: 34 Year
  Sex: Female

DRUGS (1)
  1. ADBRY [Suspect]
     Active Substance: TRALOKINUMAB-LDRM
     Indication: Dermatitis atopic
     Dosage: 4 SYRINGES ON DAY 1 THEN AT 2 SYRINGES EVERY 14 DAYS. TREATMENT REPORTED AS ONGOING
     Route: 058
     Dates: start: 202405

REACTIONS (1)
  - Contusion [Unknown]
